FAERS Safety Report 15866911 (Version 1)
Quarter: 2019Q1

REPORT INFORMATION
  Report Type: Spontaneous
  Country: US (occurrence: US)
  Receive Date: 20190125
  Receipt Date: 20190125
  Transmission Date: 20190417
  Serious: Yes (Hospitalization)
  Sender: FDA-Public Use
  Company Number: US-FRESENIUS MEDICAL CARE RENAL THERAPIES GROUP-FMC-1901-000083

PATIENT
  Age: 67 Year
  Sex: Male
  Weight: 68 kg

DRUGS (13)
  1. DELFLEX WITH DEXTROSE 2.5% LOW MAGNESIUM LOW CALCIUM [Suspect]
     Active Substance: CALCIUM CHLORIDE\DEXTROSE\MAGNESIUM CHLORIDE\SODIUM CHLORIDE\SODIUM LACTATE
     Indication: END STAGE RENAL DISEASE
     Route: 033
  2. ALPRAZOLAM. [Concomitant]
     Active Substance: ALPRAZOLAM
  3. CARVEDILOL. [Concomitant]
     Active Substance: CARVEDILOL
  4. LACTULOSE. [Concomitant]
     Active Substance: LACTULOSE
  5. OXYCODONE [Concomitant]
     Active Substance: OXYCODONE
  6. CALCIUM ACETATE. [Concomitant]
     Active Substance: CALCIUM ACETATE
  7. LEVETIRACETAM. [Concomitant]
     Active Substance: LEVETIRACETAM
  8. NIFEDIPINE. [Concomitant]
     Active Substance: NIFEDIPINE
  9. INSULIN [Concomitant]
     Active Substance: INSULIN NOS
  10. ACETAMINOPHEN. [Concomitant]
     Active Substance: ACETAMINOPHEN
  11. ATORVASTATIN [Concomitant]
     Active Substance: ATORVASTATIN
  12. WARFARIN [Concomitant]
     Active Substance: WARFARIN
  13. HYDRALAZINE [Concomitant]
     Active Substance: HYDRALAZINE HYDROCHLORIDE

REACTIONS (4)
  - Treatment noncompliance [Recovering/Resolving]
  - Seizure [Recovering/Resolving]
  - Pneumonia aspiration [Recovering/Resolving]
  - Hyperkalaemia [Recovering/Resolving]

NARRATIVE: CASE EVENT DATE: 20190102
